FAERS Safety Report 20707833 (Version 1)
Quarter: 2022Q2

REPORT INFORMATION
  Report Type: Spontaneous
  Country: DE (occurrence: DE)
  Receive Date: 20220414
  Receipt Date: 20220414
  Transmission Date: 20220720
  Serious: Yes (Hospitalization, Other)
  Sender: FDA-Public Use
  Company Number: DE-BRISTOL-MYERS SQUIBB COMPANY-2022-016779

PATIENT
  Sex: Female

DRUGS (3)
  1. NIVOLUMAB [Suspect]
     Active Substance: NIVOLUMAB
     Indication: Non-small cell lung cancer
     Dosage: DOSE : UNAVAILABLE;     FREQ : UNAVAILABLE
  2. IPILIMUMAB [Suspect]
     Active Substance: IPILIMUMAB
     Indication: Non-small cell lung cancer
  3. DEXAMETHASONE [Concomitant]
     Active Substance: DEXAMETHASONE
     Indication: Product used for unknown indication

REACTIONS (6)
  - Visual impairment [Unknown]
  - Dysphagia [Unknown]
  - Weight decreased [Unknown]
  - Hyperthyroidism [Unknown]
  - Guillain-Barre syndrome [Unknown]
  - Ophthalmoplegia [Unknown]

NARRATIVE: CASE EVENT DATE: 20220106
